FAERS Safety Report 12333457 (Version 1)
Quarter: 2016Q2

REPORT INFORMATION
  Report Type: Spontaneous
  Country: US (occurrence: US)
  Receive Date: 20160504
  Receipt Date: 20160504
  Transmission Date: 20160815
  Serious: No
  Sender: FDA-Public Use
  Company Number: US-ROCHE-ITM201506IM018052

PATIENT
  Sex: Female
  Weight: 43.58 kg

DRUGS (2)
  1. ESBRIET [Suspect]
     Active Substance: PIRFENIDONE
     Route: 048
  2. ESBRIET [Suspect]
     Active Substance: PIRFENIDONE
     Indication: IDIOPATHIC PULMONARY FIBROSIS
     Route: 048
     Dates: start: 20150408

REACTIONS (8)
  - Abdominal pain [Unknown]
  - Functional gastrointestinal disorder [Unknown]
  - Weight decreased [Unknown]
  - Dyspnoea [Unknown]
  - Flatulence [Unknown]
  - Gastric disorder [Unknown]
  - Abdominal pain upper [Unknown]
  - Medication error [Unknown]
